FAERS Safety Report 18582685 (Version 2)
Quarter: 2021Q1

REPORT INFORMATION
  Report Type: Report from Study
  Country: US (occurrence: US)
  Receive Date: 20201205
  Receipt Date: 20210111
  Transmission Date: 20210419
  Serious: Yes (Other)
  Sender: FDA-Public Use
  Company Number: US-TAKEDA-US202004303

PATIENT
  Age: 71 Year
  Sex: Female

DRUGS (12)
  1. TEDUGLUTIDE [Suspect]
     Active Substance: TEDUGLUTIDE
     Dosage: 2.96 MILLIGRAM, QD
     Route: 058
     Dates: start: 20191223
  2. TEDUGLUTIDE [Suspect]
     Active Substance: TEDUGLUTIDE
     Dosage: 2.96 MILLIGRAM, QD
     Route: 058
     Dates: start: 20191224
  3. TEDUGLUTIDE [Suspect]
     Active Substance: TEDUGLUTIDE
     Dosage: 2.96 MILLIGRAM, QD
     Route: 058
     Dates: start: 20191223
  4. TEDUGLUTIDE [Suspect]
     Active Substance: TEDUGLUTIDE
     Dosage: 2.96 MILLIGRAM, QD
     Route: 058
     Dates: start: 20191224
  5. TEDUGLUTIDE [Suspect]
     Active Substance: TEDUGLUTIDE
     Dosage: 2.96 MILLIGRAM, QD
     Route: 058
     Dates: start: 20191223
  6. TEDUGLUTIDE [Suspect]
     Active Substance: TEDUGLUTIDE
     Dosage: 2.96 MILLIGRAM, QD
     Route: 058
     Dates: start: 20191224
  7. TEDUGLUTIDE [Suspect]
     Active Substance: TEDUGLUTIDE
     Dosage: 2.96 MILLIGRAM, QD
     Route: 058
     Dates: start: 20191224
  8. TEDUGLUTIDE [Suspect]
     Active Substance: TEDUGLUTIDE
     Indication: SHORT-BOWEL SYNDROME
     Dosage: 2.96 MILLIGRAM, QD
     Route: 058
     Dates: start: 20191219
  9. TEDUGLUTIDE [Suspect]
     Active Substance: TEDUGLUTIDE
     Indication: SHORT-BOWEL SYNDROME
     Dosage: 2.96 MILLIGRAM, QD
     Route: 058
     Dates: start: 20191219
  10. TEDUGLUTIDE [Suspect]
     Active Substance: TEDUGLUTIDE
     Indication: SHORT-BOWEL SYNDROME
     Dosage: 2.96 MILLIGRAM, QD
     Route: 058
     Dates: start: 20191219
  11. TEDUGLUTIDE [Suspect]
     Active Substance: TEDUGLUTIDE
     Indication: SHORT-BOWEL SYNDROME
     Dosage: 2.96 MILLIGRAM, QD
     Route: 058
     Dates: start: 20191219
  12. TEDUGLUTIDE [Suspect]
     Active Substance: TEDUGLUTIDE
     Dosage: 2.96 MILLIGRAM, QD
     Route: 058
     Dates: start: 20191223

REACTIONS (15)
  - Bile duct stenosis [Unknown]
  - Blister [Unknown]
  - Needle issue [Unknown]
  - Burning sensation [Unknown]
  - Palpitations [Unknown]
  - Lipase increased [Unknown]
  - Dyschezia [Unknown]
  - Stool pH decreased [Unknown]
  - Diarrhoea [Recovering/Resolving]
  - Fatigue [Unknown]
  - Limb discomfort [Unknown]
  - Insomnia [Unknown]
  - Peripheral swelling [Unknown]
  - Faecal volume decreased [Unknown]
  - Discomfort [Unknown]

NARRATIVE: CASE EVENT DATE: 201912
